FAERS Safety Report 6610901-1 (Version None)
Quarter: 2010Q1

REPORT INFORMATION
  Report Type: 
  Country: None (occurrence: None)
  Receive Date: 20100302
  Receipt Date: 20100223
  Transmission Date: 20100710
  Serious: Yes (Other)
  Sender: FDA-Public Use
  Company Number: FR-GENENTECH-298639

PATIENT
  Age: 62 Year
  Sex: Male

DRUGS (3)
  1. MABTHERA [Suspect]
     Indication: PEMPHIGOID
     Dosage: 1 G, Q15D
     Route: 042
     Dates: start: 20091001, end: 20100201
  2. DISULONE [Concomitant]
     Indication: PEMPHIGOID
     Dosage: UNK
  3. SALAZOPYRINE [Concomitant]
     Indication: PEMPHIGOID
     Dosage: UNK

REACTIONS (1)
  - NEUTROPENIA [None]
